FAERS Safety Report 16941666 (Version 1)
Quarter: 2019Q4

REPORT INFORMATION
  Report Type: Spontaneous
  Country: US (occurrence: US)
  Receive Date: 20191021
  Receipt Date: 20191021
  Transmission Date: 20200122
  Serious: Yes (Death, Hospitalization, Other)
  Sender: FDA-Public Use
  Company Number: NVSC2019US010094

PATIENT
  Age: 80 Year
  Sex: Male

DRUGS (2)
  1. GEMCITABINE. [Suspect]
     Active Substance: GEMCITABINE
     Indication: SQUAMOUS CELL CARCINOMA OF LUNG
     Dosage: UNK UNK, CYCLIC (2 CYCLES)
     Route: 065
  2. CARBOPLATIN. [Suspect]
     Active Substance: CARBOPLATIN
     Indication: SQUAMOUS CELL CARCINOMA OF LUNG
     Dosage: UNK UNK, CYCLIC (2 CYCLES)
     Route: 065

REACTIONS (6)
  - Respiratory failure [Fatal]
  - Pancytopenia [Fatal]
  - Condition aggravated [Fatal]
  - Product use in unapproved indication [Unknown]
  - Bone marrow failure [Fatal]
  - Renal failure [Fatal]
